FAERS Safety Report 6945892-7 (Version None)
Quarter: 2010Q3

REPORT INFORMATION
  Report Type: 
  Country: None (occurrence: None)
  Receive Date: 20100827
  Receipt Date: 20100825
  Transmission Date: 20110219
  Serious: No
  Sender: FDA-Public Use
  Company Number: US-B.I. PHARMACEUTICALS,INC./RIDGEFIELD-2010-BP-09704BP

PATIENT
  Sex: Female

DRUGS (13)
  1. COMBIVENT [Suspect]
     Indication: ASTHMA
     Dosage: 8 PUF
     Route: 055
     Dates: start: 20020101
  2. FUROSEMIDE [Concomitant]
     Indication: OEDEMA
  3. ZETIA [Concomitant]
     Indication: BLOOD CHOLESTEROL INCREASED
  4. CRESTOR [Concomitant]
     Indication: BLOOD CHOLESTEROL INCREASED
  5. GAS X [Concomitant]
     Indication: ABDOMINAL DISTENSION
  6. LAXITIVES [Concomitant]
     Indication: CONSTIPATION
  7. STOOL SOFTENERS [Concomitant]
     Indication: CONSTIPATION
  8. MULTIVITAMIN [Concomitant]
     Indication: VISION BLURRED
  9. EYE MOISTURIZER [Concomitant]
     Indication: VISION BLURRED
  10. CLARINEX [Concomitant]
     Indication: SEASONAL ALLERGY
  11. BYSTOLIC [Concomitant]
     Indication: HYPERTENSION
  12. KLOR-CON [Concomitant]
     Indication: PROPHYLAXIS
  13. VITAMINS [Concomitant]
     Indication: PROPHYLAXIS

REACTIONS (4)
  - ARRHYTHMIA [None]
  - DRUG INEFFECTIVE [None]
  - DYSPHONIA [None]
  - OSTEOPOROSIS [None]
